FAERS Safety Report 25085876 (Version 1)
Quarter: 2025Q1

REPORT INFORMATION
  Report Type: Spontaneous
  Country: US (occurrence: None)
  Receive Date: 20250315
  Receipt Date: 20250315
  Transmission Date: 20250408
  Serious: Yes (Disabling)
  Sender: FDA-CTU
  Company Number: None

PATIENT
  Age: 59 Year
  Sex: Male
  Weight: 78.75 kg

DRUGS (6)
  1. PREDNISONE [Suspect]
     Active Substance: PREDNISONE
     Indication: Back pain
     Dosage: OTHER QUANTITY : 6 TABLET(S);?FREQUENCY : DAILY;?
     Route: 048
     Dates: start: 20241204, end: 20241209
  2. OXYCODONE WITH APAP exemestane [Concomitant]
  3. VITAMION B [Concomitant]
  4. VITAMIN D [Concomitant]
     Active Substance: VITAMIN D NOS
  5. AMINO ACIDS [Concomitant]
     Active Substance: AMINO ACIDS
  6. PRASTERONE [Concomitant]
     Active Substance: PRASTERONE

REACTIONS (17)
  - Pain [None]
  - Formication [None]
  - Burning sensation [None]
  - Muscle twitching [None]
  - Chromaturia [None]
  - Urine odour abnormal [None]
  - Confusional state [None]
  - Memory impairment [None]
  - Prostate cancer [None]
  - Symptom recurrence [None]
  - Micturition urgency [None]
  - Defaecation urgency [None]
  - Muscle atrophy [None]
  - Asthenia [None]
  - Muscle atrophy [None]
  - Inadequate analgesia [None]
  - Myopathy [None]

NARRATIVE: CASE EVENT DATE: 20241205
